FAERS Safety Report 5097986-1 (Version None)
Quarter: 2006Q3

REPORT INFORMATION
  Report Type: 
  Country: None (occurrence: None)
  Receive Date: 20060905
  Receipt Date: 20060823
  Transmission Date: 20061208
  Serious: Yes (Other)
  Sender: FDA-Public Use
  Company Number: 2006-02030

PATIENT
  Age: 55 Year

DRUGS (4)
  1. VELCADE [Suspect]
     Indication: MULTIPLE MYELOMA
     Dosage: INTRAVENOUS
     Route: 042
  2. DOXORUBICIN HCL [Suspect]
     Indication: MULTIPLE MYELOMA
  3. DEXAMETHASONE [Suspect]
     Indication: MULTIPLE MYELOMA
  4. SULFAMETHOXAZOLE + TRIMETHOPRIM [Concomitant]

REACTIONS (3)
  - ANAL CANCER [None]
  - BOWEN'S DISEASE [None]
  - CARCINOMA IN SITU OF SKIN [None]
